FAERS Safety Report 10559455 (Version 2)
Quarter: 2014Q4

REPORT INFORMATION
  Report Type: Spontaneous
  Country: GB (occurrence: None)
  Receive Date: 20141030
  Receipt Date: 20141201
  Transmission Date: 20150529
  Serious: Yes (Death, Other)
  Sender: FDA-Public Use
  Company Number: 2592889

PATIENT
  Age: 66 Year
  Sex: Female
  Weight: 50 kg

DRUGS (6)
  1. OXALIPLATIN. [Suspect]
     Active Substance: OXALIPLATIN
     Indication: ADJUVANT THERAPY
     Dosage: 200 MG MILLIGRAMS, 1 DAY, INTRAVENOUS (NOT OTHERWISE SPECIFIED)
     Route: 042
     Dates: start: 20140703, end: 20140703
  2. DOMPERIDONE [Concomitant]
     Active Substance: DOMPERIDONE
  3. CAPECITABINE. [Suspect]
     Active Substance: CAPECITABINE
     Indication: ADJUVANT THERAPY
     Route: 048
     Dates: start: 20140704, end: 20140709
  4. CAPECITABINE. [Suspect]
     Active Substance: CAPECITABINE
     Indication: PRODUCT USED FOR UNKNOWN INDICATION
     Route: 048
     Dates: start: 20140704, end: 20140709
  5. LOPERAMIDE [Concomitant]
     Active Substance: LOPERAMIDE
  6. DEXAMETHASONE. [Concomitant]
     Active Substance: DEXAMETHASONE

REACTIONS (9)
  - Dysgeusia [None]
  - Arrhythmia [None]
  - Cardiac arrest [None]
  - Vomiting [None]
  - Circulatory collapse [None]
  - Stoma complication [None]
  - Electrolyte imbalance [None]
  - Diarrhoea [None]
  - Nausea [None]
